FAERS Safety Report 21119584 (Version 1)
Quarter: 2022Q3

REPORT INFORMATION
  Report Type: Spontaneous
  Country: TH (occurrence: TH)
  Receive Date: 20220722
  Receipt Date: 20220722
  Transmission Date: 20221027
  Serious: Yes (Other)
  Sender: FDA-Public Use
  Company Number: TH-SLATE RUN PHARMACEUTICALS-22TH001219

PATIENT

DRUGS (8)
  1. AZITHROMYCIN [Suspect]
     Active Substance: AZITHROMYCIN
     Indication: Maternal exposure during pregnancy
     Dosage: UNK
  2. ASPIRIN [Concomitant]
     Active Substance: ASPIRIN
     Indication: Maternal exposure during pregnancy
     Dosage: 81 MILLIGRAM
  3. INSULIN NOS [Concomitant]
     Active Substance: INSULIN NOS
     Indication: Maternal exposure during pregnancy
     Dosage: 16 INTERNATIONAL UNIT, QD
  4. UNSPECIFIED INGREDIENT [Concomitant]
     Active Substance: UNSPECIFIED INGREDIENT
     Indication: Maternal exposure during pregnancy
  5. AMPICILLIN [Concomitant]
     Active Substance: AMPICILLIN
     Indication: Maternal exposure during pregnancy
  6. CEFTRIAXONE [Concomitant]
     Active Substance: CEFTRIAXONE
     Indication: Maternal exposure during pregnancy
     Dosage: 2 GRAM, QD
     Route: 042
  7. METRONIDAZOLE [Concomitant]
     Active Substance: METRONIDAZOLE
     Indication: Maternal exposure during pregnancy
     Dosage: 500 MILLIGRAM, Q 8 HR
     Route: 042
  8. CLARITHROMYCIN [Concomitant]
     Active Substance: CLARITHROMYCIN
     Indication: Maternal exposure during pregnancy
     Dosage: 500 MILLIGRAM, Q 8 HR
     Route: 048

REACTIONS (6)
  - Neonatal respiratory distress [Unknown]
  - Sepsis neonatal [Unknown]
  - Hypoglycaemia neonatal [Unknown]
  - Premature baby [Unknown]
  - Apgar score low [Recovered/Resolved]
  - Foetal exposure during pregnancy [Recovered/Resolved]
